FAERS Safety Report 20205336 (Version 8)
Quarter: 2022Q3

REPORT INFORMATION
  Report Type: Report from Study
  Country: KR (occurrence: KR)
  Receive Date: 20211220
  Receipt Date: 20220729
  Transmission Date: 20221027
  Serious: Yes (Death, Hospitalization)
  Sender: FDA-Public Use
  Company Number: KR-GLAXOSMITHKLINE-KR2021237393

PATIENT

DRUGS (29)
  1. BELANTAMAB MAFODOTIN [Suspect]
     Active Substance: BELANTAMAB MAFODOTIN
     Indication: Plasma cell myeloma
     Dosage: 250 ML, CYC
     Route: 042
     Dates: start: 20210511, end: 20211013
  2. BORTEZOMIB [Suspect]
     Active Substance: BORTEZOMIB
     Indication: Plasma cell myeloma
     Dosage: 2.24 MG, CYC
     Route: 058
     Dates: start: 20210511, end: 20211025
  3. DEXAMETHASONE [Suspect]
     Active Substance: DEXAMETHASONE
     Indication: Plasma cell myeloma
     Dosage: 20 MG
     Dates: start: 20210511, end: 20211026
  4. MORPHINE SULFATE [Concomitant]
     Active Substance: MORPHINE SULFATE
     Indication: Pain prophylaxis
     Dosage: 10 MG, PRN
     Route: 042
     Dates: start: 20211206, end: 20211210
  5. MORPHINE SULFATE [Concomitant]
     Active Substance: MORPHINE SULFATE
     Dosage: 90 MG, PRN
     Route: 042
     Dates: start: 20211206, end: 20211210
  6. BEAROBAN [Concomitant]
     Indication: Stomatitis
     Dosage: 1 DF, PRN
     Route: 061
     Dates: start: 20211203, end: 20211209
  7. TANTUM [Concomitant]
     Active Substance: BENZYDAMINE HYDROCHLORIDE
     Indication: Inflammation
     Dosage: 1 DF, TID
     Route: 048
     Dates: start: 20211201, end: 20211203
  8. BARACLUDE [Concomitant]
     Active Substance: ENTECAVIR
     Indication: Liver function test
     Route: 048
     Dates: start: 20211129, end: 20211205
  9. SULFAMETHOXAZOLE\TRIMETHOPRIM [Concomitant]
     Active Substance: SULFAMETHOXAZOLE\TRIMETHOPRIM
     Indication: Prophylaxis
     Dosage: 1 DF, 1D
     Route: 048
     Dates: start: 20211128, end: 20211128
  10. TASNA [Concomitant]
     Indication: Gastritis prophylaxis
     Dosage: 1 DF, 1D
     Route: 048
     Dates: start: 20211128, end: 20211128
  11. VITAMIN K1 [Concomitant]
     Active Substance: PHYTONADIONE
     Indication: Prophylaxis
     Dosage: 1 DF, 1D
     Route: 015
     Dates: start: 20211125, end: 20211125
  12. MECKOOL [Concomitant]
     Indication: Gastritis prophylaxis
     Dosage: 0.5 DF, 1D
     Route: 042
     Dates: start: 20211125, end: 20211125
  13. UNI-INFUSION [Concomitant]
     Indication: Liver function test abnormal
     Dosage: 2 DF, 1D
     Route: 042
     Dates: start: 20211124, end: 20211209
  14. GODEX CAPSULE [Concomitant]
     Indication: Liver function test abnormal
     Dosage: 2 DF, TID
     Route: 048
     Dates: start: 20211129, end: 20211205
  15. GODEX CAPSULE [Concomitant]
     Dosage: 1 DF, TID
     Route: 048
     Dates: start: 20211123, end: 20211123
  16. KABIVEN [Concomitant]
     Active Substance: AMINO ACIDS\ANHYDROUS DEXTROSE\CALCIUM CHLORIDE\MAGNESIUM SULFATE HEPTAHYDRATE\POTASSIUM CHLORIDE\SO
     Indication: Nutritional supplementation
     Dosage: 1904 ML, 1D
     Route: 042
     Dates: start: 20211123, end: 20211123
  17. PHOSTEN [Concomitant]
     Indication: Nutritional supplementation
     Dosage: 1 DF, 1D
     Route: 042
     Dates: start: 20211122, end: 20211123
  18. URSODIOL [Concomitant]
     Active Substance: URSODIOL
     Indication: Liver function test abnormal
     Dosage: 1 DF, TID
     Route: 048
     Dates: start: 20211129, end: 20211205
  19. URSODIOL [Concomitant]
     Active Substance: URSODIOL
     Dosage: 1 UNK, TID
     Route: 048
     Dates: start: 20211122, end: 20211123
  20. ALBUMIN HUMAN [Concomitant]
     Active Substance: ALBUMIN HUMAN
     Indication: Blood albumin
     Dosage: 1 DF, 1D
     Route: 042
     Dates: start: 20211122, end: 20211122
  21. TASNA [Concomitant]
     Indication: Gastritis prophylaxis
     Dosage: 2 DF, BID
     Route: 048
     Dates: start: 20211122, end: 20211122
  22. GASMOTIN POWDER [Concomitant]
     Indication: Gastritis prophylaxis
     Dosage: 5 MG, TID
     Route: 048
     Dates: start: 20211120, end: 20211205
  23. TRESIBA [Concomitant]
     Active Substance: INSULIN DEGLUDEC
     Indication: Diabetes mellitus
     Dosage: 1 DF, PRN
     Route: 058
     Dates: start: 20211119, end: 20211125
  24. HEXAMEDIN [Concomitant]
     Indication: Inflammation
     Dosage: 1 DF, BID
     Route: 048
     Dates: start: 20211119, end: 20211129
  25. HUMALOG KWIKPEN [Concomitant]
     Active Substance: INSULIN LISPRO
     Indication: Diabetes mellitus
     Dosage: 1 DF, PRN
     Route: 058
     Dates: start: 20211118, end: 20211209
  26. PANTOPRAZOLE SODIUM [Concomitant]
     Active Substance: PANTOPRAZOLE SODIUM
     Indication: Gastritis prophylaxis
     Dosage: 1 DF, 1D
     Route: 042
     Dates: start: 20211118, end: 20211125
  27. ISOPTIN [Concomitant]
     Active Substance: VERAPAMIL HYDROCHLORIDE
     Indication: Arrhythmia
     Dosage: 1 DF, PRN
     Route: 042
     Dates: start: 20211116, end: 20211117
  28. HEPARIN SODIUM [Concomitant]
     Active Substance: HEPARIN SODIUM
     Indication: Prophylaxis
     Dosage: 1 DF, PRN
     Route: 042
     Dates: start: 20211116, end: 20211125
  29. MORPHINE [Concomitant]
     Active Substance: MORPHINE
     Indication: Pain
     Dosage: 2 MG, PRN
     Route: 042
     Dates: start: 20211206, end: 20211206

REACTIONS (1)
  - Pneumonia [Fatal]

NARRATIVE: CASE EVENT DATE: 20211102
